FAERS Safety Report 17884240 (Version 1)
Quarter: 2020Q2

REPORT INFORMATION
  Report Type: Spontaneous
  Country: US (occurrence: US)
  Receive Date: 20200611
  Receipt Date: 20200611
  Transmission Date: 20200714
  Serious: Yes (Other)
  Sender: FDA-Public Use
  Company Number: US-STRIDES ARCOLAB LIMITED-2020SP006891

PATIENT
  Age: 43 Year
  Sex: Male

DRUGS (1)
  1. TRIAMCINOLONE ACETONIDE. [Suspect]
     Active Substance: TRIAMCINOLONE ACETONIDE
     Indication: RHINITIS ALLERGIC
     Dosage: UNK
     Route: 045

REACTIONS (5)
  - Chorioretinopathy [Recovered/Resolved]
  - Visual field defect [Recovered/Resolved]
  - Visual impairment [Recovered/Resolved]
  - Metamorphopsia [Recovered/Resolved]
  - Subretinal fluid [Recovered/Resolved]
